FAERS Safety Report 4514501-9 (Version None)
Quarter: 2004Q4

REPORT INFORMATION
  Report Type: 
  Country: None (occurrence: None)
  Receive Date: 20040928
  Receipt Date: 20040629
  Transmission Date: 20050328
  Serious: No
  Sender: FDA-Public Use
  Company Number: 04P-163-0265112

PATIENT
  Age: 59 Year
  Sex: Female

DRUGS (7)
  1. HUMIRA [Suspect]
     Indication: RHEUMATOID ARTHRITIS
     Dosage: SEE IMAGE, SUBCUTANEOUS
     Route: 058
     Dates: start: 20040131, end: 20040419
  2. HUMIRA [Suspect]
     Indication: RHEUMATOID ARTHRITIS
     Dosage: SEE IMAGE, SUBCUTANEOUS
     Route: 058
     Dates: start: 20040419
  3. ROFECOXIB [Concomitant]
  4. PREDNISONE [Concomitant]
  5. ESOMEPRAZOLE [Concomitant]
  6. FOLIC ACID [Concomitant]
  7. VENLAFAXINE HYDROCHLORIDE [Concomitant]

REACTIONS (2)
  - ALOPECIA [None]
  - DRUG INEFFECTIVE [None]
